FAERS Safety Report 8310268-7 (Version None)
Quarter: 2012Q2

REPORT INFORMATION
  Report Type: 
  Country: None (occurrence: None)
  Receive Date: 20120425
  Receipt Date: 20120411
  Transmission Date: 20120825
  Serious: Yes (Life-Threatening, Hospitalization)
  Sender: FDA-Public Use
  Company Number: US-BAUSCH-2012BL002589

PATIENT
  Age: 34 Year
  Sex: Male

DRUGS (1)
  1. ATROPINE [Suspect]
     Route: 048

REACTIONS (13)
  - SEDATION [None]
  - PUPIL FIXED [None]
  - MENTAL STATUS CHANGES [None]
  - AGITATION [None]
  - MUCOSAL DRYNESS [None]
  - FLUSHING [None]
  - SUICIDE ATTEMPT [None]
  - INTENTIONAL DRUG MISUSE [None]
  - BODY TEMPERATURE INCREASED [None]
  - SYNCOPE [None]
  - AGGRESSION [None]
  - TACHYCARDIA [None]
  - SOMNOLENCE [None]
